FAERS Safety Report 19035836 (Version 2)
Quarter: 2021Q2

REPORT INFORMATION
  Report Type: Spontaneous
  Country: CA (occurrence: CA)
  Receive Date: 20210321
  Receipt Date: 20210416
  Transmission Date: 20210717
  Serious: Yes (Other)
  Sender: FDA-Public Use
  Company Number: CA-TEVA-370786USA

PATIENT
  Age: 68 Year
  Sex: Female

DRUGS (2)
  1. CALCIUM WITH VITAMIN D [Concomitant]
     Active Substance: CALCIUM\VITAMIN D
     Dosage: 7.5 ML DAILY;
     Route: 048
  2. TEVA?RISEDRONATE [Suspect]
     Active Substance: RISEDRONATE SODIUM
     Indication: OSTEOPOROSIS
     Dates: start: 20120903, end: 20120917

REACTIONS (9)
  - Rectal haemorrhage [Recovered/Resolved]
  - Thrombosis [Unknown]
  - Haematoma [Recovered/Resolved]
  - Capillary fragility [Unknown]
  - Ear pain [Unknown]
  - Pain in jaw [Unknown]
  - Inner ear inflammation [Unknown]
  - Haemorrhoids thrombosed [Unknown]
  - Neoplasm [Unknown]

NARRATIVE: CASE EVENT DATE: 2012
